FAERS Safety Report 6904135-0 (Version None)
Quarter: 2010Q3

REPORT INFORMATION
  Report Type: 
  Country: None (occurrence: None)
  Receive Date: 20100804
  Receipt Date: 20090315
  Transmission Date: 20110219
  Serious: No
  Sender: FDA-Public Use
  Company Number: US-PFIZER INC-2008161003

PATIENT
  Sex: Female
  Weight: 98.4 kg

DRUGS (11)
  1. LYRICA [Suspect]
     Indication: PAIN IN EXTREMITY
     Dosage: 50 MG, 2X/DAY
     Route: 048
     Dates: start: 20081101
  2. CARDIZEM [Concomitant]
     Dosage: 300 MG, UNK
     Route: 048
  3. CARDURA [Concomitant]
     Dosage: 8 MG, UNK
     Route: 048
  4. MULTI-VITAMINS [Concomitant]
     Dosage: UNK
     Route: 048
  5. ACETYLSALICYLIC ACID [Concomitant]
     Dosage: UNK
     Route: 048
  6. ALLERGY MEDICATION [Concomitant]
     Dosage: UNK
     Route: 048
  7. PLAVIX [Concomitant]
     Dosage: 75 MG, 1X/DAY
     Route: 048
  8. SYNTHROID [Concomitant]
     Dosage: UNK
     Route: 048
  9. VALSARTAN [Concomitant]
     Dosage: UNK
     Route: 048
  10. VITAMIN B COMPLEX CAP [Concomitant]
     Dosage: UNK
     Route: 048
  11. CHOLESTEROL- AND TRIGLYCERIDE REDUCERS [Concomitant]
     Dosage: UNK
     Route: 048

REACTIONS (5)
  - MYALGIA [None]
  - OEDEMA PERIPHERAL [None]
  - PAIN IN EXTREMITY [None]
  - SECRETION DISCHARGE [None]
  - WEIGHT INCREASED [None]
